FAERS Safety Report 22035915 (Version 1)
Quarter: 2023Q1

REPORT INFORMATION
  Report Type: Spontaneous
  Country: RU (occurrence: None)
  Receive Date: 20230224
  Receipt Date: 20230224
  Transmission Date: 20230418
  Serious: Yes (Other)
  Sender: FDA-Public Use
  Company Number: 2023A041932

PATIENT
  Age: 26 Year
  Sex: Female

DRUGS (2)
  1. NEXIUM [Suspect]
     Active Substance: ESOMEPRAZOLE MAGNESIUM
     Route: 048
  2. ITOMED [Concomitant]

REACTIONS (5)
  - Oesophageal pain [Unknown]
  - Tremor [Unknown]
  - Pallor [Unknown]
  - Ill-defined disorder [Unknown]
  - Eructation [Unknown]
